FAERS Safety Report 11129013 (Version 1)
Quarter: 2015Q2

REPORT INFORMATION
  Report Type: Spontaneous
  Country: US (occurrence: US)
  Receive Date: 20150521
  Receipt Date: 20150521
  Transmission Date: 20150821
  Serious: Yes (Other)
  Sender: FDA-Public Use
  Company Number: PHEH2015US009587

PATIENT
  Sex: Female

DRUGS (6)
  1. DIOVAN [Suspect]
     Active Substance: VALSARTAN
     Indication: PROPHYLAXIS
     Dosage: 80 MG, QD
     Route: 048
  2. VALSARTAN RANBAXY [Suspect]
     Active Substance: VALSARTAN
     Indication: PROPHYLAXIS
     Dosage: 80 MG, UNK
     Route: 048
     Dates: start: 20141024
  3. VITAMIN D [Concomitant]
     Active Substance: CHOLECALCIFEROL
     Indication: SUPPLEMENTATION THERAPY
     Route: 048
  4. VITAMIN C [Concomitant]
     Active Substance: ASCORBIC ACID
     Indication: SUPPLEMENTATION THERAPY
     Route: 048
  5. DIOVAN [Suspect]
     Active Substance: VALSARTAN
     Dosage: UNK
     Route: 065
  6. BIOTIN [Concomitant]
     Active Substance: BIOTIN
     Indication: PRODUCT USED FOR UNKNOWN INDICATION
     Route: 065

REACTIONS (4)
  - Diabetes mellitus [Unknown]
  - Off label use [Unknown]
  - Alopecia [Recovering/Resolving]
  - Breast cancer [Unknown]
